FAERS Safety Report 7529012-6 (Version None)
Quarter: 2011Q2

REPORT INFORMATION
  Report Type: 
  Country: None (occurrence: None)
  Receive Date: 20110520
  Receipt Date: 20110406
  Transmission Date: 20111010
  Serious: No
  Sender: FDA-Public Use
  Company Number: 030775

PATIENT
  Age: 21 Year
  Sex: Female

DRUGS (1)
  1. LACOSAMIDE [Suspect]
     Dosage: (15 MG BID)

REACTIONS (4)
  - HYPOAESTHESIA [None]
  - INSOMNIA [None]
  - PANIC ATTACK [None]
  - FALL [None]
